FAERS Safety Report 12275842 (Version 1)
Quarter: 2016Q2

REPORT INFORMATION
  Report Type: Spontaneous
  Country: CH (occurrence: CH)
  Receive Date: 20160418
  Receipt Date: 20160418
  Transmission Date: 20160815
  Serious: Yes (Hospitalization)
  Sender: FDA-Public Use
  Company Number: CH-CIPLA LTD.-2016CH03644

PATIENT

DRUGS (2)
  1. ONDANSETRON [Interacting]
     Active Substance: ONDANSETRON
     Dosage: 24 MG/DAY
     Route: 042
  2. LEVOFLOXACIN. [Suspect]
     Active Substance: LEVOFLOXACIN
     Dosage: 500 MG/DAY
     Route: 042

REACTIONS (3)
  - Medication error [Unknown]
  - Drug interaction [Unknown]
  - Electrocardiogram QT prolonged [Unknown]
